FAERS Safety Report 9269503 (Version 1)
Quarter: 2013Q2

REPORT INFORMATION
  Report Type: Spontaneous
  Country: US (occurrence: US)
  Receive Date: 20130503
  Receipt Date: 20130503
  Transmission Date: 20140414
  Serious: Yes (Other)
  Sender: FDA-Public Use
  Company Number: US-PFIZER INC-2013136756

PATIENT
  Sex: Male

DRUGS (2)
  1. ADVIL [Suspect]
     Dosage: UNK
  2. ADVIL [Suspect]
     Dosage: 4  TABLETS
     Dates: start: 20130430

REACTIONS (2)
  - Accidental overdose [Unknown]
  - Poisoning [Unknown]
